FAERS Safety Report 16924760 (Version 1)
Quarter: 2019Q4

REPORT INFORMATION
  Report Type: Spontaneous
  Country: US (occurrence: US)
  Receive Date: 20191015
  Receipt Date: 20191015
  Transmission Date: 20200122
  Serious: Yes (Hospitalization)
  Sender: FDA-Public Use
  Company Number: None

PATIENT
  Age: 30 Year
  Sex: Female

DRUGS (7)
  1. VIT B12/FA [Concomitant]
  2. IRON [Concomitant]
     Active Substance: IRON
  3. AZATHIOPRINE. [Concomitant]
     Active Substance: AZATHIOPRINE
  4. NORETHINDRON [Concomitant]
  5. HUMIRA [Suspect]
     Active Substance: ADALIMUMAB
     Indication: CROHN^S DISEASE
     Dosage: ?          OTHER FREQUENCY:WEEKLY;?
     Route: 058
     Dates: start: 20160721
  6. ASACOL [Concomitant]
     Active Substance: MESALAMINE
  7. LEVETIRACETA [Concomitant]

REACTIONS (2)
  - Maternal exposure timing unspecified [None]
  - Maternal drugs affecting foetus [None]

NARRATIVE: CASE EVENT DATE: 20191007
